FAERS Safety Report 8525649-6 (Version None)
Quarter: 2012Q3

REPORT INFORMATION
  Report Type: 
  Country: None (occurrence: None)
  Receive Date: 20120720
  Receipt Date: 20120709
  Transmission Date: 20120928
  Serious: No
  Sender: FDA-Public Use
  Company Number: US-009507513-1206USA04179

PATIENT

DRUGS (1)
  1. COSOPT [Suspect]
     Dosage: 2 GTT, BID
     Route: 047
     Dates: start: 20100101

REACTIONS (2)
  - HEADACHE [None]
  - THERAPEUTIC RESPONSE UNEXPECTED [None]
